FAERS Safety Report 24996757 (Version 1)
Quarter: 2025Q1

REPORT INFORMATION
  Report Type: Spontaneous
  Country: BR (occurrence: BR)
  Receive Date: 20250221
  Receipt Date: 20250221
  Transmission Date: 20250409
  Serious: Yes (Death, Hospitalization)
  Sender: BIOMARIN
  Company Number: BR-BIOMARINAP-BR-2025-164035

PATIENT

DRUGS (1)
  1. NAGLAZYME [Suspect]
     Active Substance: GALSULFASE
     Indication: Mucopolysaccharidosis VI
     Route: 065

REACTIONS (4)
  - Respiratory disorder [Fatal]
  - Pulpitis dental [Unknown]
  - Toothache [Unknown]
  - Refusal of treatment by relative [Unknown]

NARRATIVE: CASE EVENT DATE: 20250214
